FAERS Safety Report 11632396 (Version 1)
Quarter: 2015Q4

REPORT INFORMATION
  Report Type: Spontaneous
  Country: US (occurrence: US)
  Receive Date: 20151015
  Receipt Date: 20151015
  Transmission Date: 20160304
  Serious: No
  Sender: FDA-Public Use
  Company Number: US-DRREDDYS-USA/USA/14/0043018

PATIENT
  Sex: Female

DRUGS (2)
  1. CLODERM [Suspect]
     Active Substance: CLOCORTOLONE PIVALATE
     Indication: RASH MACULAR
  2. CLODERM [Suspect]
     Active Substance: CLOCORTOLONE PIVALATE
     Indication: RASH ERYTHEMATOUS
     Route: 061
     Dates: start: 20140821

REACTIONS (2)
  - Product quality issue [Unknown]
  - Drug ineffective [Unknown]
